FAERS Safety Report 23062725 (Version 2)
Quarter: 2024Q2

REPORT INFORMATION
  Report Type: Spontaneous
  Country: FR (occurrence: FR)
  Receive Date: 20231013
  Receipt Date: 20240418
  Transmission Date: 20240716
  Serious: Yes (Life-Threatening)
  Sender: FDA-Public Use
  Company Number: None

PATIENT
  Age: 61 Year
  Sex: Female
  Weight: 83.5 kg

DRUGS (8)
  1. SEVOFLURANE [Suspect]
     Active Substance: SEVOFLURANE
     Indication: General anaesthesia
     Dosage: LIQUID POUR INHALATION PAR VAPOR
     Route: 050
     Dates: start: 20230915, end: 20230915
  2. LIDOCAINE [Suspect]
     Active Substance: LIDOCAINE
     Indication: Hysteroscopy
     Dosage: TIME INTERVAL: 1 TOTAL
     Route: 042
     Dates: start: 20230915, end: 20230915
  3. DEXAMETHASONE [Suspect]
     Active Substance: DEXAMETHASONE
     Indication: Hysteroscopy
     Dosage: TIME INTERVAL: 1 TOTAL
     Route: 042
     Dates: start: 20230915, end: 20230915
  4. SUFENTANIL [Suspect]
     Active Substance: SUFENTANIL
     Indication: General anaesthesia
     Dosage: TIME INTERVAL: 1 TOTAL
     Route: 042
     Dates: start: 20230915, end: 20230915
  5. ACUPAN [Suspect]
     Active Substance: NEFOPAM HYDROCHLORIDE
     Indication: Procedural pain
     Route: 042
     Dates: start: 20230915, end: 20230915
  6. KETAMINE [Suspect]
     Active Substance: KETAMINE
     Indication: General anaesthesia
     Route: 042
     Dates: start: 20230915, end: 20230915
  7. PROPOFOL [Suspect]
     Active Substance: PROPOFOL
     Indication: General anaesthesia
     Dosage: TIME INTERVAL: 1 TOTAL
     Route: 042
     Dates: start: 20230915, end: 20230915
  8. DROPERIDOL [Suspect]
     Active Substance: DROPERIDOL
     Indication: Procedural pain
     Dosage: TIME INTERVAL: 1 TOTAL: 1,25 MG/2,5 ML, SOLUTION INJECTABLE
     Route: 042
     Dates: start: 20230915, end: 20230915

REACTIONS (1)
  - Bronchospasm [Recovered/Resolved]

NARRATIVE: CASE EVENT DATE: 20230915
